FAERS Safety Report 9236411 (Version 1)
Quarter: 2013Q2

REPORT INFORMATION
  Report Type: Spontaneous
  Country: DK (occurrence: DK)
  Receive Date: 20130417
  Receipt Date: 20130417
  Transmission Date: 20140414
  Serious: Yes (Other)
  Sender: FDA-Public Use
  Company Number: DK-SANOFI-AVENTIS-2013SA037496

PATIENT
  Age: 55 Year
  Sex: Female

DRUGS (1)
  1. PLAQUENIL [Suspect]
     Indication: RHEUMATOID ARTHRITIS
     Dosage: STYRKE: 200 MG?DOSIS: 200 MG X 1 DAGLIGT.
     Route: 048
     Dates: start: 20121116, end: 201212

REACTIONS (4)
  - Cyst [Unknown]
  - Diarrhoea [Unknown]
  - Rash [Unknown]
  - Nausea [Unknown]
